FAERS Safety Report 22966984 (Version 2)
Quarter: 2025Q4

REPORT INFORMATION
  Report Type: Spontaneous
  Country: EU (occurrence: None)
  Receive Date: 20230921
  Receipt Date: 20251023
  Transmission Date: 20260117
  Serious: Yes (Other)
  Sender: ORGANON
  Company Number: EU-ORGANON-O2309ESP002114

PATIENT
  Age: 50 Year
  Sex: Female
  Weight: 53 kg

DRUGS (3)
  1. MIRTAZAPINE [Suspect]
     Active Substance: MIRTAZAPINE
     Indication: Sleep disorder
     Dosage: 1 TABLET BEFORE SLEEP, HS
     Dates: start: 20230907
  2. FLUOXETINE [Concomitant]
     Active Substance: FLUOXETINE HYDROCHLORIDE
     Indication: Anxiety
     Dosage: 1 DOSAGE FORM (1 TABLET), QD
     Dates: start: 20230601, end: 20230606
  3. LORAZEPAM [Concomitant]
     Active Substance: LORAZEPAM
     Indication: Sleep disorder
     Dosage: 1 DOSAGE FORM (1 TABLET), QD
     Dates: start: 20230601, end: 20230606

REACTIONS (8)
  - Musculoskeletal stiffness [Recovered/Resolved]
  - Muscle rigidity [Recovered/Resolved]
  - Disturbance in attention [Recovered/Resolved]
  - Asthenia [Recovered/Resolved]
  - Blood pressure decreased [Recovered/Resolved]
  - Hypoaesthesia oral [Recovered/Resolved]
  - Headache [Recovered/Resolved]
  - Dizziness [Recovered/Resolved]

NARRATIVE: CASE EVENT DATE: 20230907
